FAERS Safety Report 19830712 (Version 1)
Quarter: 2021Q3

REPORT INFORMATION
  Report Type: Spontaneous
  Country: US (occurrence: US)
  Receive Date: 20210913
  Receipt Date: 20210913
  Transmission Date: 20211014
  Serious: Yes (Other)
  Sender: FDA-Public Use
  Company Number: None

PATIENT
  Age: 39 Year
  Sex: Male
  Weight: 90.5 kg

DRUGS (1)
  1. GENERIC LAMOTRIGINE [Suspect]
     Active Substance: LAMOTRIGINE
     Indication: PARTIAL SEIZURES
     Route: 048
     Dates: start: 2005

REACTIONS (2)
  - Product substitution issue [None]
  - Seizure [None]
